FAERS Safety Report 6894662-7 (Version None)
Quarter: 2010Q3

REPORT INFORMATION
  Report Type: 
  Country: None (occurrence: None)
  Receive Date: 20100802
  Receipt Date: 20100727
  Transmission Date: 20110219
  Serious: Yes (Death, Hospitalization, Other)
  Sender: FDA-Public Use
  Company Number: FR-BRISTOL-MYERS SQUIBB COMPANY-15213135

PATIENT
  Age: 81 Year
  Sex: Female
  Weight: 66 kg

DRUGS (7)
  1. TAXOL [Suspect]
     Indication: BREAST CANCER
     Dosage: INTERRUPTED + RESUMED ON 14JAN10
     Route: 042
     Dates: start: 20091119, end: 20100311
  2. AVASTIN [Suspect]
     Indication: BREAST CANCER
     Dosage: 1DF=25 MG/ML  INTERRUPTED + RESUMED ON 14JAN10
     Route: 042
     Dates: start: 20091119, end: 20100311
  3. XELODA [Suspect]
     Dates: start: 20100506, end: 20100607
  4. ONDANSETRON [Concomitant]
     Indication: PREMEDICATION
  5. METHYLPREDNISOLONE [Concomitant]
     Indication: PREMEDICATION
  6. DEXCHLORPHENIRAMINE MALEATE [Concomitant]
     Indication: PREMEDICATION
  7. RANITIDINE HCL [Concomitant]
     Indication: PREMEDICATION

REACTIONS (8)
  - ALTERED STATE OF CONSCIOUSNESS [None]
  - DECREASED APPETITE [None]
  - DIARRHOEA [None]
  - EPILEPSY [None]
  - GENERAL PHYSICAL HEALTH DETERIORATION [None]
  - NEUTROPHIL COUNT DECREASED [None]
  - PULMONARY CONGESTION [None]
  - WEIGHT DECREASED [None]
